FAERS Safety Report 6508546-7 (Version None)
Quarter: 2009Q4

REPORT INFORMATION
  Report Type: 
  Country: None (occurrence: None)
  Receive Date: 20091221
  Receipt Date: 20081203
  Transmission Date: 20100525
  Serious: No
  Sender: FDA-Public Use
  Company Number: US-ASTRAZENECA-2008UW25262

PATIENT
  Age: 80 Year
  Sex: Male

DRUGS (8)
  1. CRESTOR [Suspect]
     Indication: HYPERCHOLESTEROLAEMIA
     Dosage: 10 MG
     Route: 048
     Dates: start: 20081001
  2. CRESTOR [Suspect]
     Indication: ARTERIOSCLEROSIS
     Dosage: 10 MG
     Route: 048
     Dates: start: 20081001
  3. ALTACE [Concomitant]
  4. NORVASC [Concomitant]
  5. TRENTAL [Concomitant]
  6. PROSCAR [Concomitant]
  7. HYTRIN [Concomitant]
  8. BABY ASPIRIN [Concomitant]

REACTIONS (3)
  - BACK PAIN [None]
  - BLOOD CREATININE INCREASED [None]
  - MUSCLE TIGHTNESS [None]
